FAERS Safety Report 8880244 (Version 1)
Quarter: 2012Q4

REPORT INFORMATION
  Report Type: 
  Country: BR (occurrence: BR)
  Receive Date: 20121101
  Receipt Date: 20121101
  Transmission Date: 20130627
  Serious: Yes (Other)
  Sender: FDA-Public Use
  Company Number: BR-ASTRAZENECA-2012SE81604

PATIENT
  Sex: Male

DRUGS (1)
  1. ATACAND HCT [Suspect]
     Indication: BLOOD PRESSURE ABNORMAL
     Dosage: 16/12.5mg
     Route: 048
     Dates: start: 2010, end: 201209

REACTIONS (2)
  - Drug ineffective [Recovered/Resolved]
  - Hypertension [Recovered/Resolved]
